FAERS Safety Report 5629731-2 (Version None)
Quarter: 2008Q1

REPORT INFORMATION
  Report Type: 
  Country: None (occurrence: None)
  Receive Date: 20080218
  Receipt Date: 20080207
  Transmission Date: 20080703
  Serious: Yes (Hospitalization, Disabling, Other)
  Sender: FDA-Public Use
  Company Number: US-MERCK-0705USA01535

PATIENT
  Age: 64 Year
  Sex: Female

DRUGS (5)
  1. FOSAMAX [Suspect]
     Indication: OSTEOPOROSIS
     Route: 048
     Dates: start: 19990701
  2. FOSAMAX [Suspect]
     Route: 048
     Dates: start: 20050701
  3. [THERAPY UNSPECIFIED] [Concomitant]
     Indication: THYROID DISORDER
     Route: 065
     Dates: start: 19800101
  4. POTASSIUM (UNSPECIFIED) [Concomitant]
     Route: 065
     Dates: start: 19700101
  5. [THERAPY UNSPECIFIED] [Concomitant]
     Route: 065
     Dates: start: 19700101

REACTIONS (12)
  - ANAEMIA OF CHRONIC DISEASE [None]
  - ANXIETY [None]
  - BRONCHITIS [None]
  - CENTRAL LINE INFECTION [None]
  - DEPRESSION [None]
  - ENCEPHALOPATHY [None]
  - ENTEROCOCCAL INFECTION [None]
  - MUSCULOSKELETAL DISCOMFORT [None]
  - OSTEOMYELITIS [None]
  - OSTEONECROSIS [None]
  - PSORIASIS [None]
  - URINARY TRACT INFECTION [None]
